FAERS Safety Report 5324214-1 (Version None)
Quarter: 2007Q2

REPORT INFORMATION
  Report Type: 
  Country: None (occurrence: None)
  Receive Date: 20070507
  Receipt Date: 20070426
  Transmission Date: 20071010
  Serious: Yes (Other)
  Sender: FDA-Public Use
  Company Number: 2007AL001696

PATIENT
  Age: 31 Year
  Sex: Female

DRUGS (4)
  1. PHENYTOIN [Suspect]
     Indication: EPILEPSY
  2. VALPROIC ACID [Concomitant]
  3. PREGABALIN [Concomitant]
  4. CLOBAZAM [Concomitant]

REACTIONS (4)
  - CEREBELLAR ATROPHY [None]
  - CONVULSION [None]
  - EXOSTOSIS [None]
  - HEAD INJURY [None]
